FAERS Safety Report 5327110-9 (Version None)
Quarter: 2007Q2

REPORT INFORMATION
  Report Type: 
  Country: None (occurrence: None)
  Receive Date: 20070517
  Receipt Date: 20070507
  Transmission Date: 20071010
  Serious: Yes (Hospitalization)
  Sender: FDA-Public Use
  Company Number: JP-JNJFOC-20061100532

PATIENT
  Sex: Female
  Weight: 50 kg

DRUGS (11)
  1. REMICADE [Suspect]
     Route: 042
  2. REMICADE [Suspect]
     Route: 042
  3. REMICADE [Suspect]
     Indication: RHEUMATOID ARTHRITIS
     Route: 042
  4. RHEUMATREX [Suspect]
     Indication: RHEUMATOID ARTHRITIS
     Route: 048
  5. ALFAROL [Suspect]
     Indication: OSTEOPOROSIS
     Dosage: 1 ^RG^ DAILY
     Route: 048
  6. ISCOTIN [Suspect]
     Indication: ANTIBIOTIC PROPHYLAXIS
     Route: 048
  7. INFREE [Suspect]
     Indication: ANALGESIC EFFECT
     Route: 048
  8. ULGUT [Suspect]
     Indication: PROPHYLAXIS
     Route: 048
  9. ASPARA-CA [Concomitant]
     Indication: OSTEOPOROSIS
     Route: 048
  10. TANATRIL [Concomitant]
     Indication: HYPERTENSION
     Route: 048
  11. NORVASC [Concomitant]
     Indication: HYPERTENSION
     Route: 048

REACTIONS (3)
  - ANAEMIA [None]
  - PANCYTOPENIA [None]
  - WHITE BLOOD CELL COUNT DECREASED [None]
